FAERS Safety Report 7898381-X (Version None)
Quarter: 2011Q4

REPORT INFORMATION
  Report Type: 
  Country: None (occurrence: None)
  Receive Date: 20111107
  Receipt Date: 20111028
  Transmission Date: 20120403
  Serious: Yes (Hospitalization, Other)
  Sender: FDA-Public Use
  Company Number: FR-ASTRAZENECA-2011SE55881

PATIENT
  Sex: Female
  Weight: 55 kg

DRUGS (8)
  1. VANDETANIB [Suspect]
     Route: 048
  2. VANDETANIB [Suspect]
     Indication: THYROID CANCER
     Route: 048
     Dates: start: 20110803
  3. PAROXETINE HCL [Concomitant]
     Indication: DEPRESSION
     Route: 048
  4. MIRTAZAPINE [Concomitant]
  5. DEPAKOTE [Concomitant]
  6. ALPRAZOLAM [Concomitant]
     Indication: ANXIETY
     Route: 048
  7. LEVOTHYROXINE SODIUM [Concomitant]
     Indication: HYPOTHYROIDISM
     Route: 048
  8. UNALFA [Concomitant]
     Indication: HYPOCALCAEMIA
     Route: 048

REACTIONS (13)
  - FOLLICULITIS [None]
  - NAUSEA [None]
  - HYPERKERATOSIS [None]
  - INSOMNIA [None]
  - DERMATITIS ACNEIFORM [None]
  - ELECTROCARDIOGRAM QT PROLONGED [None]
  - HYPERTENSION [None]
  - ASTHENIA [None]
  - XEROSIS [None]
  - PHOTOSENSITIVITY REACTION [None]
  - HYPOACUSIS [None]
  - HAEMOPTYSIS [None]
  - DIARRHOEA [None]
